FAERS Safety Report 8933283 (Version 1)
Quarter: 2012Q4

REPORT INFORMATION
  Report Type: 
  Country: GB (occurrence: GB)
  Receive Date: 20121129
  Receipt Date: 20121129
  Transmission Date: 20130627
  Serious: Yes (Hospitalization)
  Sender: FDA-Public Use
  Company Number: GB-RANBAXY-2012R1-62430

PATIENT
  Age: 62 Year
  Sex: Male

DRUGS (4)
  1. ATENOLOL [Suspect]
     Indication: HYPERTENSION
     Dosage: 25 mg, bid
     Route: 048
  2. ENALAPRIL [Suspect]
     Indication: HYPERTENSION
     Dosage: 40 mg, qd
     Route: 048
  3. SERTRALINE [Suspect]
     Indication: DEPRESSION
     Dosage: 50 mg, qd
     Route: 048
     Dates: start: 201210, end: 20121102
  4. BENDROFLUMETHIAZIDE [Suspect]
     Indication: HYPERTENSION
     Dosage: 2.5 mg, qd
     Route: 048

REACTIONS (4)
  - Inappropriate antidiuretic hormone secretion [Not Recovered/Not Resolved]
  - Confusional state [Unknown]
  - Hyponatraemia [Unknown]
  - Lethargy [Unknown]
